FAERS Safety Report 11739284 (Version 1)
Quarter: 2015Q4

REPORT INFORMATION
  Report Type: Spontaneous
  Country: JP (occurrence: JP)
  Receive Date: 20151113
  Receipt Date: 20151113
  Transmission Date: 20160304
  Serious: Yes (Other)
  Sender: FDA-Public Use
  Company Number: JP-BAYER-2015-462276

PATIENT

DRUGS (1)
  1. ASPIRIN ^BAYER^ (JP ASPIRIN) [Suspect]
     Active Substance: ASPIRIN
     Indication: KAWASAKI^S DISEASE
     Route: 048

REACTIONS (1)
  - Hepatic steatosis [None]
